FAERS Safety Report 19923242 (Version 1)
Quarter: 2021Q4

REPORT INFORMATION
  Report Type: Spontaneous
  Country: US (occurrence: US)
  Receive Date: 20211005
  Receipt Date: 20211005
  Transmission Date: 20220303
  Serious: No
  Sender: FDA-Public Use
  Company Number: US-PERRIGO-20US014533

PATIENT
  Age: 3 Year
  Sex: Male
  Weight: 14.74 kg

DRUGS (2)
  1. CHILDRENS CETIRIZINE HYDROCHLORIDE ALLERGY [Suspect]
     Active Substance: CETIRIZINE HYDROCHLORIDE
     Indication: Perennial allergy
     Dosage: 2.5 MG, NIGHTLY
     Route: 048
     Dates: start: 202008, end: 20201006
  2. CHILDRENS CETIRIZINE HYDROCHLORIDE ALLERGY [Suspect]
     Active Substance: CETIRIZINE HYDROCHLORIDE
     Dosage: UNKNOWN, SINGLE
     Route: 048
     Dates: start: 20201007, end: 20201007

REACTIONS (3)
  - Irritability [Not Recovered/Not Resolved]
  - Somnolence [Not Recovered/Not Resolved]
  - Accidental exposure to product by child [Recovered/Resolved]

NARRATIVE: CASE EVENT DATE: 20201007
